FAERS Safety Report 6572999-9 (Version None)
Quarter: 2010Q1

REPORT INFORMATION
  Report Type: 
  Country: None (occurrence: None)
  Receive Date: 20100208
  Receipt Date: 20100127
  Transmission Date: 20100710
  Serious: Yes (Life-Threatening)
  Sender: FDA-Public Use
  Company Number: FR-BRACCO-000351

PATIENT
  Sex: Male

DRUGS (20)
  1. SIMVASTATIN [Concomitant]
     Route: 048
  2. CROMOLYN SODIUM [Concomitant]
     Dosage: 1 DROP A DAY IN EACH EYE.
  3. MULTIHANCE [Suspect]
     Indication: NUCLEAR MAGNETIC RESONANCE IMAGING BRAIN
     Route: 042
     Dates: start: 20091218, end: 20091218
  4. MULTIHANCE [Suspect]
     Indication: BASILAR ARTERY STENOSIS
     Route: 042
     Dates: start: 20091218, end: 20091218
  5. KARDEGIC [Concomitant]
  6. DIFFU K [Concomitant]
  7. ALLOPURINOL [Concomitant]
     Route: 048
  8. PIASCLEDINE [Concomitant]
  9. CORENITEC [Concomitant]
     Route: 048
  10. NOOTROPIL [Concomitant]
  11. AUGMENTIN [Concomitant]
     Dosage: 1 G TID BY MOUTH (DAY 2/7)
     Route: 048
  12. CALCIPARINE [Concomitant]
     Route: 058
  13. ADRENALIN [Concomitant]
     Dosage: TOTAL DOSE WAS 6 MG
     Dates: start: 20101218
  14. ADRENALIN [Concomitant]
     Dosage: AFTER TOTAL DOSE OF 6 MG, THE PULSE CAME BACK AND ADRENALIN WAS CONTINUED AS CONTINUOUS INFUSION
     Dates: end: 20091221
  15. OXYGEN [Concomitant]
     Dosage: MECHANICAL VENTILATION WITH 100% INHALED OXYGEN
  16. ASPEGIC 1000 [Concomitant]
     Route: 048
  17. NEXIUM [Concomitant]
     Dosage: BY MOUTH
     Route: 048
  18. BRICANYL COMP. [Concomitant]
     Route: 050
  19. LASILIX [Concomitant]
     Route: 048
  20. PROPOFOL [Concomitant]
     Dosage: LOW DOSE
     Dates: end: 20091223

REACTIONS (2)
  - CARDIO-RESPIRATORY ARREST [None]
  - RENAL FAILURE [None]
